FAERS Safety Report 7639806-4 (Version None)
Quarter: 2011Q3

REPORT INFORMATION
  Report Type: 
  Country: None (occurrence: None)
  Receive Date: 20110727
  Receipt Date: 20110721
  Transmission Date: 20111222
  Serious: Yes (Other)
  Sender: FDA-Public Use
  Company Number: US-PFIZER INC-2011159170

PATIENT
  Sex: Female
  Weight: 58.957 kg

DRUGS (1)
  1. LYRICA [Suspect]
     Indication: NEURALGIA
     Dosage: 75 MG, 1X/DAY
     Route: 048
     Dates: start: 20110710, end: 20110711

REACTIONS (4)
  - MUSCULAR WEAKNESS [None]
  - FATIGUE [None]
  - GAIT DISTURBANCE [None]
  - URTICARIA [None]
